FAERS Safety Report 18390407 (Version 1)
Quarter: 2020Q4

REPORT INFORMATION
  Report Type: Spontaneous
  Country: US (occurrence: US)
  Receive Date: 20201015
  Receipt Date: 20201015
  Transmission Date: 20210114
  Serious: Yes (Other)
  Sender: FDA-Public Use
  Company Number: US-ELI_LILLY_AND_COMPANY-US202010002838

PATIENT
  Sex: Male

DRUGS (2)
  1. HUMATROPE [Suspect]
     Active Substance: SOMATROPIN
     Dosage: 24 MG, UNKNOWN
     Route: 058
  2. HUMATROPE [Suspect]
     Active Substance: SOMATROPIN
     Indication: GROWTH HORMONE DEFICIENCY
     Dosage: 24 MG, UNKNOWN
     Route: 058
     Dates: start: 2014

REACTIONS (5)
  - Seasonal allergy [Not Recovered/Not Resolved]
  - Cardiac disorder [Recovered/Resolved]
  - Rhinorrhoea [Not Recovered/Not Resolved]
  - Syncope [Recovered/Resolved]
  - Sneezing [Not Recovered/Not Resolved]

NARRATIVE: CASE EVENT DATE: 2016
